FAERS Safety Report 26045859 (Version 1)
Quarter: 2025Q4

REPORT INFORMATION
  Report Type: Spontaneous
  Country: IN (occurrence: IN)
  Receive Date: 20251114
  Receipt Date: 20251114
  Transmission Date: 20260117
  Serious: Yes (Death)
  Sender: RANBAXY
  Company Number: IN-SUN PHARMACEUTICAL INDUSTRIES INC-2025R1-536405

PATIENT
  Sex: Male
  Weight: 55 kg

DRUGS (4)
  1. RANITIDINE [Suspect]
     Active Substance: RANITIDINE
     Indication: Gastric lavage
     Dosage: 50 MILLIGRAM, BID
     Route: 065
  2. ONDANSETRON [Suspect]
     Active Substance: ONDANSETRON
     Indication: Gastric lavage
     Dosage: 4 MILLIGRAM, TID
     Route: 065
  3. DEXAMETHASONE [Suspect]
     Active Substance: DEXAMETHASONE
     Indication: Gastric lavage
     Dosage: 8 MILLIGRAM, TID
     Route: 065
  4. ACETYLCYSTEINE [Suspect]
     Active Substance: ACETYLCYSTEINE
     Indication: Gastric lavage
     Dosage: UNK, 3 DOSE
     Route: 065

REACTIONS (1)
  - Condition aggravated [Fatal]
